FAERS Safety Report 10177066 (Version 1)
Quarter: 2014Q2

REPORT INFORMATION
  Report Type: Spontaneous
  Country: US (occurrence: US)
  Receive Date: 20140516
  Receipt Date: 20140516
  Transmission Date: 20141212
  Serious: No
  Sender: FDA-Public Use
  Company Number: US-009507513-1405USA006616

PATIENT
  Sex: 0

DRUGS (1)
  1. DULERA [Suspect]
     Dosage: 2 DF, BID; 200/5 MCG/ 2PUFFS TWICE DAILY; ORAL INHALATION
     Route: 055
     Dates: start: 20140122

REACTIONS (4)
  - Drug dose omission [Unknown]
  - Inappropriate schedule of drug administration [Unknown]
  - Product quality issue [Unknown]
  - No adverse event [Unknown]
